FAERS Safety Report 13094910 (Version 1)
Quarter: 2017Q1

REPORT INFORMATION
  Report Type: Spontaneous
  Country: JP (occurrence: JP)
  Receive Date: 20170106
  Receipt Date: 20170106
  Transmission Date: 20170428
  Serious: Yes (Other)
  Sender: FDA-Public Use
  Company Number: JP-BAUSCH-BL-2016-031810

PATIENT
  Age: 71 Year
  Sex: Male
  Weight: 81 kg

DRUGS (2)
  1. VISUDYNE [Suspect]
     Active Substance: VERTEPORFIN
     Indication: AGE-RELATED MACULAR DEGENERATION
     Route: 065
     Dates: start: 20150625, end: 20150625
  2. VISUDYNE [Suspect]
     Active Substance: VERTEPORFIN
     Route: 065
     Dates: start: 20151126, end: 20151126

REACTIONS (3)
  - Retinal haemorrhage [Recovered/Resolved]
  - Disease progression [Unknown]
  - Age-related macular degeneration [Unknown]

NARRATIVE: CASE EVENT DATE: 20150821
